FAERS Safety Report 21239307 (Version 1)
Quarter: 2022Q3

REPORT INFORMATION
  Report Type: Spontaneous
  Country: US (occurrence: None)
  Receive Date: 20220819
  Receipt Date: 20220819
  Transmission Date: 20221026
  Serious: Yes (Disabling, Other)
  Sender: FDA-Public Use
  Company Number: None

PATIENT
  Age: 41 Year
  Sex: Female
  Weight: 72 kg

DRUGS (1)
  1. LUPRON [Suspect]
     Active Substance: LEUPROLIDE ACETATE
     Indication: In vitro fertilisation
     Dates: start: 20190915, end: 20190920

REACTIONS (10)
  - Gait disturbance [None]
  - Fatigue [None]
  - Constipation [None]
  - Abdominal distension [None]
  - Weight increased [None]
  - Loss of libido [None]
  - Hot flush [None]
  - Hormone level abnormal [None]
  - Depression [None]
  - Premature menopause [None]

NARRATIVE: CASE EVENT DATE: 20190915
